FAERS Safety Report 6291295-0 (Version None)
Quarter: 2009Q3

REPORT INFORMATION
  Report Type: 
  Country: None (occurrence: None)
  Receive Date: 20090730
  Receipt Date: 20090727
  Transmission Date: 20100115
  Serious: Yes (Other)
  Sender: FDA-Public Use
  Company Number: JP-BAYER-200910733BYL

PATIENT
  Age: 61 Year
  Sex: Male
  Weight: 67 kg

DRUGS (13)
  1. NEXAVAR [Suspect]
     Indication: RENAL CELL CARCINOMA STAGE IV
     Dosage: UNIT DOSE: 200 MG
     Route: 048
     Dates: start: 20081110, end: 20081121
  2. NEXAVAR [Suspect]
     Dosage: UNIT DOSE: 200 MG
     Route: 048
     Dates: start: 20081121, end: 20081212
  3. NEXAVAR [Suspect]
     Dosage: UNIT DOSE: 200 MG
     Route: 048
     Dates: start: 20081212, end: 20090227
  4. NEXAVAR [Suspect]
     Dosage: UNIT DOSE: 200 MG
     Route: 048
     Dates: start: 20090227, end: 20090511
  5. NEXAVAR [Suspect]
     Dosage: UNIT DOSE: 200 MG
     Route: 048
     Dates: start: 20090515
  6. ALLOPURINOL [Suspect]
     Route: 048
     Dates: start: 20081110, end: 20081225
  7. ALLOPURINOL [Suspect]
     Route: 048
     Dates: end: 20090501
  8. MELOXICAM [Concomitant]
     Route: 048
     Dates: start: 20081110, end: 20081225
  9. CIMETIDINE HCL [Concomitant]
     Route: 048
     Dates: start: 20081110, end: 20090227
  10. ARTIST [Concomitant]
     Route: 048
     Dates: start: 20081110, end: 20090227
  11. AMLODIPINE [Concomitant]
     Route: 048
     Dates: start: 20081110, end: 20090227
  12. NU-LOTAN [Concomitant]
     Route: 048
     Dates: start: 20081110, end: 20090227
  13. PRIMPERAN [Concomitant]
     Route: 048
     Dates: start: 20081110, end: 20090109

REACTIONS (4)
  - BLOOD AMYLASE INCREASED [None]
  - HEPATIC FUNCTION ABNORMAL [None]
  - PALMAR-PLANTAR ERYTHRODYSAESTHESIA SYNDROME [None]
  - RASH [None]
